FAERS Safety Report 7369818-X (Version None)
Quarter: 2011Q1

REPORT INFORMATION
  Report Type: 
  Country: None (occurrence: None)
  Receive Date: 20110323
  Receipt Date: 20110322
  Transmission Date: 20110831
  Serious: Yes (Other)
  Sender: FDA-Public Use
  Company Number: US-PFIZER INC-2010054890

PATIENT

DRUGS (2)
  1. PROTONIX [Suspect]
     Route: 042
  2. HEPARIN SODIUM [Suspect]

REACTIONS (2)
  - THROMBOCYTOPENIA [None]
  - HAEMORRHAGE [None]
